FAERS Safety Report 6832013-4 (Version None)
Quarter: 2010Q3

REPORT INFORMATION
  Report Type: 
  Country: None (occurrence: None)
  Receive Date: 20100712
  Receipt Date: 20100701
  Transmission Date: 20110219
  Serious: Yes (Other)
  Sender: FDA-Public Use
  Company Number: BE-NOVOPROD-304057

PATIENT
  Age: 64 Year
  Sex: Male

DRUGS (9)
  1. INSULATARD HM PENFILL [Suspect]
     Indication: TYPE 2 DIABETES MELLITUS
     Dosage: 1 INJECTION
     Route: 058
     Dates: start: 20090901, end: 20091201
  2. HUMULIN N [Suspect]
     Dosage: UNK
     Dates: start: 20091201
  3. LANTUS [Suspect]
  4. GLURENORM [Concomitant]
  5. GLUCOPHAGE [Concomitant]
  6. ASAFLOW [Concomitant]
  7. BISOPROLOL [Concomitant]
  8. PRAVASTATIN [Concomitant]
  9. NEXIAM                             /01479301/ [Concomitant]

REACTIONS (3)
  - DERMATITIS [None]
  - INJECTION SITE REACTION [None]
  - PANNICULITIS [None]
